FAERS Safety Report 5932255-6 (Version None)
Quarter: 2008Q4

REPORT INFORMATION
  Report Type: 
  Country: None (occurrence: None)
  Receive Date: 20081028
  Receipt Date: 20081021
  Transmission Date: 20090506
  Serious: Yes (Hospitalization, Other)
  Sender: FDA-Public Use
  Company Number: IE-BRISTOL-MYERS SQUIBB COMPANY-14350375

PATIENT
  Age: 72 Year
  Sex: Female

DRUGS (2)
  1. CETUXIMAB [Suspect]
     Indication: BREAST CANCER METASTATIC
     Dosage: RECENT ADMINISTRATION:16SEP08; DELAYED ON 23SEP08.
     Route: 042
     Dates: start: 20080805, end: 20080916
  2. CISPLATIN [Suspect]
     Indication: BREAST CANCER METASTATIC
     Dosage: RECENT ADMINISTRATION:16SEP08
     Route: 042
     Dates: start: 20080805, end: 20080916

REACTIONS (9)
  - ABDOMINAL DISTENSION [None]
  - ANOREXIA [None]
  - COUGH [None]
  - DIARRHOEA [None]
  - FATIGUE [None]
  - OEDEMA [None]
  - PNEUMONIA [None]
  - PYREXIA [None]
  - VOMITING [None]
